FAERS Safety Report 4517243-9 (Version None)
Quarter: 2004Q4

REPORT INFORMATION
  Report Type: 
  Country: None (occurrence: None)
  Receive Date: 20041202
  Receipt Date: 20041123
  Transmission Date: 20050328
  Serious: Yes (Other)
  Sender: FDA-Public Use
  Company Number: US-MERCK-0411USA03761

PATIENT
  Sex: Female

DRUGS (1)
  1. VIOXX [Suspect]
     Route: 048
     Dates: start: 20000101

REACTIONS (3)
  - ADVERSE EVENT [None]
  - CAROTID ARTERY DISEASE [None]
  - CEREBROVASCULAR ACCIDENT [None]
